FAERS Safety Report 11048770 (Version 5)
Quarter: 2016Q4

REPORT INFORMATION
  Report Type: Spontaneous
  Country: US (occurrence: US)
  Receive Date: 20150420
  Receipt Date: 20161207
  Transmission Date: 20170206
  Serious: Yes (Hospitalization, Other)
  Sender: FDA-Public Use
  Company Number: US-009507513-1504USA017096

PATIENT
  Sex: Male

DRUGS (10)
  1. FINASTERIDE. [Suspect]
     Active Substance: FINASTERIDE
     Indication: PROSTATOMEGALY
     Dosage: 5 MG, UNK
     Route: 048
     Dates: start: 20120504, end: 201502
  2. FINASTERIDE. [Suspect]
     Active Substance: FINASTERIDE
     Indication: TYPE 2 DIABETES MELLITUS
  3. FINASTERIDE. [Suspect]
     Active Substance: FINASTERIDE
     Indication: TYPE 2 DIABETES MELLITUS
     Dosage: 0.5 MG, UNK
     Route: 048
     Dates: start: 2012, end: 2015
  4. AVODART [Suspect]
     Active Substance: DUTASTERIDE
     Indication: TYPE 2 DIABETES MELLITUS
     Dosage: 0.5 MG, UNK
     Route: 065
     Dates: start: 2012, end: 2015
  5. AVODART [Suspect]
     Active Substance: DUTASTERIDE
     Indication: PROSTATOMEGALY
     Dosage: UNK, QD
     Route: 065
     Dates: start: 201104
  6. FLOMAX [Suspect]
     Active Substance: TAMSULOSIN HYDROCHLORIDE
     Indication: TYPE 2 DIABETES MELLITUS
  7. FINASTERIDE. [Suspect]
     Active Substance: FINASTERIDE
     Indication: PROSTATOMEGALY
     Dosage: UNK
     Route: 065
  8. TAMSULOSIN HYDROCHLORIDE. [Suspect]
     Active Substance: TAMSULOSIN HYDROCHLORIDE
     Indication: PROSTATOMEGALY
     Dosage: UNK
     Route: 065
     Dates: start: 2012, end: 2015
  9. TAMSULOSIN HYDROCHLORIDE. [Suspect]
     Active Substance: TAMSULOSIN HYDROCHLORIDE
     Indication: TYPE 2 DIABETES MELLITUS
  10. FLOMAX [Suspect]
     Active Substance: TAMSULOSIN HYDROCHLORIDE
     Indication: PROSTATOMEGALY
     Dosage: UNK, QD
     Route: 065
     Dates: start: 201104, end: 2015

REACTIONS (30)
  - Anxiety [Not Recovered/Not Resolved]
  - Loss of libido [Unknown]
  - Micturition urgency [Unknown]
  - Shoulder arthroplasty [Unknown]
  - Urinary retention [Unknown]
  - Depression [Not Recovered/Not Resolved]
  - Premature ejaculation [Unknown]
  - Back pain [Unknown]
  - Radiculopathy [Unknown]
  - Chest pain [Unknown]
  - Shoulder arthroplasty [Unknown]
  - Diabetic neuropathy [Unknown]
  - Tonsillectomy [Unknown]
  - Neck pain [Unknown]
  - Hypercholesterolaemia [Unknown]
  - Emotional distress [Not Recovered/Not Resolved]
  - Lower urinary tract symptoms [Unknown]
  - Carpal tunnel syndrome [Unknown]
  - Sexual dysfunction [Not Recovered/Not Resolved]
  - Benign prostatic hyperplasia [Unknown]
  - Raynaud^s phenomenon [Unknown]
  - Erectile dysfunction [Not Recovered/Not Resolved]
  - Shoulder arthroplasty [Unknown]
  - Anorgasmia [Unknown]
  - Cataract [Unknown]
  - Hypogonadism [Unknown]
  - Androgen deficiency [Unknown]
  - Papillary thyroid cancer [Unknown]
  - Hypertension [Unknown]
  - Proteinuria [Unknown]

NARRATIVE: CASE EVENT DATE: 2002
